FAERS Safety Report 7783972-7 (Version None)
Quarter: 2011Q3

REPORT INFORMATION
  Report Type: 
  Country: None (occurrence: None)
  Receive Date: 20110928
  Receipt Date: 20110922
  Transmission Date: 20111222
  Serious: Yes (Death)
  Sender: FDA-Public Use
  Company Number: DE-SANOFI-AVENTIS-2011SA012344

PATIENT
  Age: 76 Year
  Sex: Male
  Weight: 74 kg

DRUGS (13)
  1. HYDROCHLOROTHIAZIDE [Concomitant]
  2. MARCUMAR [Concomitant]
  3. PALLADONE [Concomitant]
  4. PREDNISONE [Suspect]
     Indication: PROSTATE CANCER
  5. ZOLADEX [Concomitant]
  6. FLUTAMIDE [Concomitant]
  7. ISOSORBIDE DINITRATE [Concomitant]
  8. RAMIPRIL [Concomitant]
  9. CABAZITAXEL [Suspect]
     Indication: PROSTATE CANCER
     Route: 042
     Dates: start: 20110113, end: 20110113
  10. AMITRIPTYLINE HCL [Concomitant]
  11. SOTALOL HCL [Concomitant]
  12. NOVALGIN [Concomitant]
  13. ZOCOR [Concomitant]

REACTIONS (1)
  - LEUKOPENIA [None]
